FAERS Safety Report 8965624 (Version 1)
Quarter: 2012Q4

REPORT INFORMATION
  Report Type: Spontaneous
  Country: US (occurrence: None)
  Receive Date: 20121217
  Receipt Date: 20121217
  Transmission Date: 20130627
  Serious: Yes (Hospitalization)
  Sender: FDA-Public Use
  Company Number: None

PATIENT
  Age: 47 Year
  Sex: Female
  Weight: 64.86 kg

DRUGS (2)
  1. TRIAMCINOLONE [Suspect]
  2. ISOVUE [Suspect]

REACTIONS (5)
  - Pyrexia [None]
  - Weight decreased [None]
  - Bacteraemia [None]
  - Cellulitis [None]
  - Systemic inflammatory response syndrome [None]
